FAERS Safety Report 5031799-1 (Version None)
Quarter: 2006Q2

REPORT INFORMATION
  Report Type: 
  Country: None (occurrence: None)
  Receive Date: 20060616
  Receipt Date: 20060608
  Transmission Date: 20061013
  Serious: Yes (Hospitalization)
  Sender: FDA-Public Use
  Company Number: MEDI-0004579

PATIENT
  Age: 2 Year
  Sex: Male

DRUGS (12)
  1. SYNAGIS [Suspect]
     Indication: ANTIVIRAL PROPHYLAXIS
     Dosage: SEE IMAGE, INTRAMUSCULAR
     Route: 030
     Dates: start: 20031218, end: 20040302
  2. SYNAGIS [Suspect]
     Indication: ANTIVIRAL PROPHYLAXIS
     Dosage: SEE IMAGE, INTRAMUSCULAR
     Route: 030
     Dates: start: 20031218
  3. SYNAGIS [Suspect]
     Indication: ANTIVIRAL PROPHYLAXIS
     Dosage: SEE IMAGE, INTRAMUSCULAR
     Route: 030
     Dates: start: 20040114
  4. SYNAGIS [Suspect]
     Indication: ANTIVIRAL PROPHYLAXIS
     Dosage: SEE IMAGE, INTRAMUSCULAR
     Route: 030
     Dates: start: 20040209
  5. ALFACALCIDOL                        (ALFACALCIDOL) [Concomitant]
  6. EPOETIN ALFA 750                      (EPOETIN ALFA) [Concomitant]
  7. MULTIPLE VITAMIN [Concomitant]
  8. FERRIC PYROPHOSPHATE                                 (FERRIC PYROPHOSP [Concomitant]
  9. LEVOTHYROXINE SODIUM [Concomitant]
  10. AMIKACIN SULFATE [Concomitant]
  11. OXYGEN          (OXYGEN) [Concomitant]
  12. CEFMETAZOLE SODIUM                 (CEFMETAZOLE SODIUM) [Concomitant]

REACTIONS (2)
  - ASTHMA [None]
  - INFECTION [None]
